FAERS Safety Report 22278624 (Version 4)
Quarter: 2023Q2

REPORT INFORMATION
  Report Type: Spontaneous
  Country: US (occurrence: US)
  Receive Date: 20230503
  Receipt Date: 20230629
  Transmission Date: 20230721
  Serious: No
  Sender: FDA-Public Use
  Company Number: US-002147023-NVSC2023US099926

PATIENT
  Sex: Female

DRUGS (1)
  1. XIIDRA [Suspect]
     Active Substance: LIFITEGRAST
     Indication: Product used for unknown indication
     Dosage: 5 %, BID
     Route: 047

REACTIONS (6)
  - Eyelid margin crusting [Unknown]
  - Illness [Unknown]
  - Vision blurred [Unknown]
  - Eye pruritus [Unknown]
  - Drug ineffective [Unknown]
  - Product packaging quantity issue [Unknown]
